FAERS Safety Report 11520425 (Version 1)
Quarter: 2015Q3

REPORT INFORMATION
  Report Type: Spontaneous
  Country: US (occurrence: US)
  Receive Date: 20150918
  Receipt Date: 20150918
  Transmission Date: 20151125
  Serious: No
  Sender: FDA-Public Use
  Company Number: US-RB-076753-15

PATIENT

DRUGS (1)
  1. MUCINEX [Suspect]
     Active Substance: GUAIFENESIN
     Indication: PRODUCT USED FOR UNKNOWN INDICATION
     Dosage: 600MG. 2 DAILY,FREQUENCY UNK
     Route: 065
     Dates: start: 20150310

REACTIONS (6)
  - Abdominal distension [Recovered/Resolved]
  - Palpitations [Recovered/Resolved]
  - Incorrect drug administration duration [Recovered/Resolved]
  - Abdominal discomfort [Recovered/Resolved]
  - Dizziness [Recovered/Resolved]
  - Diarrhoea [Not Recovered/Not Resolved]
